FAERS Safety Report 9906188 (Version 1)
Quarter: 2014Q1

REPORT INFORMATION
  Report Type: Spontaneous
  Country: US (occurrence: US)
  Receive Date: 20140218
  Receipt Date: 20140218
  Transmission Date: 20141002
  Serious: Yes (Death)
  Sender: FDA-Public Use
  Company Number: US-FRI-1000054169

PATIENT
  Age: 64 Year
  Sex: Male

DRUGS (1)
  1. NAMENDA [Suspect]

REACTIONS (1)
  - Death [Fatal]
